FAERS Safety Report 6430826-4 (Version None)
Quarter: 2009Q4

REPORT INFORMATION
  Report Type: 
  Country: None (occurrence: None)
  Receive Date: 20091106
  Receipt Date: 20091030
  Transmission Date: 20100525
  Serious: Yes (Hospitalization)
  Sender: FDA-Public Use
  Company Number: GXKR2009DE12146

PATIENT
  Age: 82 Year
  Sex: Female

DRUGS (1)
  1. IBUHEXAL AKUT (NGX) [Suspect]
     Dosage: 400 MG, PRN
     Route: 048

REACTIONS (1)
  - CIRCULATORY COLLAPSE [None]
